FAERS Safety Report 17240796 (Version 3)
Quarter: 2020Q2

REPORT INFORMATION
  Report Type: Spontaneous
  Country: JP (occurrence: JP)
  Receive Date: 20200107
  Receipt Date: 20200409
  Transmission Date: 20200713
  Serious: Yes (Death, Life-Threatening, Other)
  Sender: FDA-Public Use
  Company Number: JP-ROCHE-2508523

PATIENT
  Age: 69 Year
  Sex: Female
  Weight: 48 kg

DRUGS (4)
  1. TECENTRIQ [Suspect]
     Active Substance: ATEZOLIZUMAB
     Indication: LUNG ADENOCARCINOMA
     Route: 041
     Dates: start: 20191031, end: 20191031
  2. AVASTIN [Suspect]
     Active Substance: BEVACIZUMAB
     Indication: LUNG ADENOCARCINOMA
     Route: 042
     Dates: start: 20191031, end: 20191031
  3. PACLITAXEL. [Suspect]
     Active Substance: PACLITAXEL
     Indication: LUNG ADENOCARCINOMA
     Route: 041
     Dates: start: 20191031, end: 20191031
  4. CARBOPLATIN. [Suspect]
     Active Substance: CARBOPLATIN
     Indication: LUNG ADENOCARCINOMA
     Route: 041
     Dates: start: 20191031, end: 20191031

REACTIONS (10)
  - Disseminated intravascular coagulation [Unknown]
  - Cholestasis [Unknown]
  - Lung adenocarcinoma [Fatal]
  - Febrile neutropenia [Fatal]
  - Hyponatraemia [Recovered/Resolved]
  - Autoimmune pancreatitis [Recovering/Resolving]
  - Haemophagocytic lymphohistiocytosis [Fatal]
  - Aspergillus infection [Fatal]
  - Enteritis [Fatal]
  - Ileus paralytic [Fatal]

NARRATIVE: CASE EVENT DATE: 201911
